FAERS Safety Report 5510025-0 (Version None)
Quarter: 2007Q4

REPORT INFORMATION
  Report Type: 
  Country: None (occurrence: None)
  Receive Date: 20071108
  Receipt Date: 20070409
  Transmission Date: 20080405
  Serious: No
  Sender: FDA-Public Use
  Company Number: US-ABBOTT-07P-163-0365716-00

PATIENT
  Sex: Male
  Weight: 74.91 kg

DRUGS (3)
  1. TARKA [Suspect]
     Indication: HYPERTENSION
     Dosage: TAKEN FOR 2 DAYS
     Route: 048
     Dates: start: 20040201
  2. CLONIDINE [Concomitant]
     Indication: HYPERTENSION
     Route: 048
     Dates: start: 20070101
  3. AMLODIPINE BESYLATE [Concomitant]
     Indication: HYPERTENSION
     Route: 048
     Dates: start: 20060401

REACTIONS (1)
  - WEIGHT INCREASED [None]
